FAERS Safety Report 20657365 (Version 1)
Quarter: 2022Q1

REPORT INFORMATION
  Report Type: Spontaneous
  Country: US (occurrence: US)
  Receive Date: 20220331
  Receipt Date: 20220331
  Transmission Date: 20220424
  Serious: No
  Sender: FDA-Public Use
  Company Number: US-AMGEN-USASP2022050574

PATIENT
  Age: 60 Year
  Sex: Female

DRUGS (2)
  1. MVASI [Suspect]
     Active Substance: BEVACIZUMAB-AWWB
     Indication: Hepatic cancer
     Dosage: 1496 MILLIGRAM (VIAL OF 400MG)
     Route: 065
     Dates: start: 20220127
  2. MVASI [Suspect]
     Active Substance: BEVACIZUMAB-AWWB
     Indication: Off label use
     Dosage: VIAL OF 100 MG
     Route: 065

REACTIONS (1)
  - Off label use [Unknown]
